FAERS Safety Report 7100288-2 (Version None)
Quarter: 2010Q4

REPORT INFORMATION
  Report Type: 
  Country: None (occurrence: None)
  Receive Date: 20101112
  Receipt Date: 20101101
  Transmission Date: 20110411
  Serious: Yes (Other)
  Sender: FDA-Public Use
  Company Number: US-AMGEN-USASP2010003286

PATIENT

DRUGS (13)
  1. EPOGEN [Suspect]
     Indication: THALASSAEMIA BETA
     Dosage: UNK UNK, QWK
     Dates: start: 20030201
  2. PLAVIX [Concomitant]
     Dosage: 75 MG, QD
     Route: 048
  3. LANTUS                             /01483501/ [Concomitant]
     Dosage: 57 UNIT, QD
     Route: 058
  4. NOVOLOG [Concomitant]
     Dosage: UNK
     Route: 058
  5. ACTONEL [Concomitant]
     Dosage: 35 MG, QWK
  6. CLONIDINE [Concomitant]
     Dosage: 0.3 MG, QD
     Route: 048
  7. FUROSEMIDE [Concomitant]
     Dosage: 40 MG, QD
     Route: 048
  8. ZETIA [Concomitant]
     Dosage: 10 MG, QD
     Route: 048
  9. DIOVAN [Concomitant]
     Dosage: 80 MG, QD
     Route: 048
  10. METOPROLOL [Concomitant]
     Dosage: 50 MG, BID
     Route: 048
  11. AMLODIPINE [Concomitant]
     Dosage: 5 MG, QD
     Route: 048
  12. LIPITOR [Concomitant]
     Dosage: 80 MG, QD
     Route: 048
  13. ASPIRIN [Concomitant]
     Dosage: 325 MG, QD
     Route: 048

REACTIONS (9)
  - AMNESIA [None]
  - ARTHRALGIA [None]
  - CONVULSION [None]
  - DIZZINESS [None]
  - FULL BLOOD COUNT ABNORMAL [None]
  - HEADACHE [None]
  - HEARING IMPAIRED [None]
  - SPEECH DISORDER [None]
  - VISUAL IMPAIRMENT [None]
